APPROVED DRUG PRODUCT: LIORESAL
Active Ingredient: BACLOFEN
Strength: 20MG **Federal Register determination that product was not discontinued or withdrawn for safety or effectiveness reasons**
Dosage Form/Route: TABLET;ORAL
Application: N017851 | Product #003
Applicant: NOVARTIS PHARMACEUTICALS CORP
Approved: Jan 20, 1982 | RLD: Yes | RS: No | Type: DISCN